FAERS Safety Report 9652035 (Version 2)
Quarter: 2013Q4

REPORT INFORMATION
  Report Type: Spontaneous
  Country: JP (occurrence: None)
  Receive Date: 20131025
  Receipt Date: 20131108
  Transmission Date: 20140711
  Serious: Yes (Hospitalization)
  Sender: FDA-Public Use
  Company Number: JP-INDOCO-000001

PATIENT
  Age: 77 Year
  Sex: Male

DRUGS (1)
  1. GLIMEPIRIDE [Suspect]

REACTIONS (4)
  - Hypoglycaemia [None]
  - Altered state of consciousness [None]
  - Wrong drug administered [None]
  - Accidental exposure to product [None]
